FAERS Safety Report 6673568-2 (Version None)
Quarter: 2010Q2

REPORT INFORMATION
  Report Type: 
  Country: None (occurrence: None)
  Receive Date: 20100408
  Receipt Date: 20100327
  Transmission Date: 20101027
  Serious: Yes (Hospitalization)
  Sender: FDA-Public Use
  Company Number: IT-PFIZER INC-2010018024

PATIENT
  Age: 93 Year
  Sex: Male

DRUGS (5)
  1. CELEBREX [Suspect]
     Indication: OSTEOARTHRITIS
     Dosage: 200 MG/DAY
     Route: 048
     Dates: start: 20091213, end: 20091214
  2. WARFARIN SODIUM [Suspect]
     Indication: VENOUS THROMBOSIS
     Dosage: 17.5 MG, WEEKLY
     Route: 048
     Dates: start: 20040101, end: 20091214
  3. LANITOP [Concomitant]
  4. BLOPRESID [Concomitant]
  5. INITISS [Concomitant]

REACTIONS (2)
  - HAEMORRHAGIC ANAEMIA [None]
  - MELAENA [None]
